FAERS Safety Report 21143868 (Version 1)
Quarter: 2022Q3

REPORT INFORMATION
  Report Type: Spontaneous
  Country: CN (occurrence: CN)
  Receive Date: 20220728
  Receipt Date: 20220728
  Transmission Date: 20221027
  Serious: Yes (Life-Threatening)
  Sender: FDA-Public Use
  Company Number: CN-NAPPMUNDI-GBR-2022-0100068

PATIENT
  Age: 82 Year
  Sex: Male
  Weight: 56 kg

DRUGS (1)
  1. OXYCODONE HYDROCHLORIDE [Suspect]
     Active Substance: OXYCODONE HYDROCHLORIDE
     Indication: Cancer pain
     Dosage: 40 MILLIGRAM, SINGLE
     Route: 048
     Dates: start: 20220714, end: 20220714

REACTIONS (9)
  - Wrong technique in product usage process [Recovering/Resolving]
  - Palpitations [Recovering/Resolving]
  - Convulsions local [Recovering/Resolving]
  - Language disorder [Recovering/Resolving]
  - Tachycardia [Recovering/Resolving]
  - Hypotension [Recovering/Resolving]
  - Miosis [Recovering/Resolving]
  - Dyspnoea [Recovering/Resolving]
  - Arrhythmia [Recovering/Resolving]

NARRATIVE: CASE EVENT DATE: 20220714
